FAERS Safety Report 9536275 (Version 1)
Quarter: 2013Q2

REPORT INFORMATION
  Report Type: Spontaneous
  Country: US (occurrence: None)
  Receive Date: 20130507
  Receipt Date: 20130507
  Transmission Date: 20140414
  Serious: No
  Sender: FDA-Public Use
  Company Number: PHEH2013US000850

PATIENT
  Age: 67 Year
  Sex: Male
  Weight: 88 kg

DRUGS (8)
  1. AFINITOR (RAD) [Suspect]
     Indication: RENAL CELL CARCINOMA
     Route: 048
     Dates: start: 20121030, end: 20130103
  2. METHADONE (METHADONE) [Concomitant]
  3. LISINOPRIL (LISINOPRIL) [Concomitant]
  4. BETHANECHOL CHLORIDE (BETHANECHOL CHLORIDE) [Concomitant]
  5. TAMSULOSIN (TAMSULOSIN) [Concomitant]
  6. NIASPAN (NICOTINIC ACID) [Concomitant]
  7. PRAVASTATIN SODIUM (PRAVASTATIN SODIUM) [Concomitant]
  8. TRIAMTERENE (TRIAMTERENE) [Concomitant]

REACTIONS (3)
  - Renal failure chronic [None]
  - Dyspnoea exertional [None]
  - Hypoxia [None]
